FAERS Safety Report 24074177 (Version 1)
Quarter: 2024Q3

REPORT INFORMATION
  Report Type: Spontaneous
  Country: US (occurrence: US)
  Receive Date: 20240710
  Receipt Date: 20240710
  Transmission Date: 20241017
  Serious: Yes (Hospitalization)
  Sender: BIOFRONTERA BIOSCIENCE
  Company Number: US-Biofrontera-2024BIO00102

PATIENT
  Sex: Female

DRUGS (1)
  1. AMELUZ [Suspect]
     Active Substance: AMINOLEVULINIC ACID HYDROCHLORIDE
     Indication: Actinic keratosis
     Route: 050
     Dates: start: 20240314, end: 20240314

REACTIONS (12)
  - Swelling [Recovered/Resolved]
  - Skin weeping [Not Recovered/Not Resolved]
  - Skin induration [Not Recovered/Not Resolved]
  - Skin exfoliation [Not Recovered/Not Resolved]
  - Photosensitivity reaction [Not Recovered/Not Resolved]
  - Eye swelling [Not Recovered/Not Resolved]
  - Swelling face [Not Recovered/Not Resolved]
  - Dermatitis contact [Not Recovered/Not Resolved]
  - Application site pain [Not Recovered/Not Resolved]
  - Sensitive skin [Not Recovered/Not Resolved]
  - Eye irritation [Not Recovered/Not Resolved]
  - Off label use [Unknown]

NARRATIVE: CASE EVENT DATE: 20240314
